FAERS Safety Report 24088879 (Version 2)
Quarter: 2024Q3

REPORT INFORMATION
  Report Type: Spontaneous
  Country: IT (occurrence: IT)
  Receive Date: 20240715
  Receipt Date: 20240718
  Transmission Date: 20241016
  Serious: Yes (Hospitalization, Other)
  Sender: EXELIXIS
  Company Number: None

PATIENT
  Age: 84 Year
  Sex: Male

DRUGS (5)
  1. CABOMETYX [Suspect]
     Active Substance: CABOZANTINIB S-MALATE
     Indication: Hepatic cancer
     Dosage: 20 MG, QD
     Route: 048
     Dates: start: 20240517, end: 20240603
  2. NIVOLUMAB [Concomitant]
     Active Substance: NIVOLUMAB
     Indication: Non-small cell lung cancer
     Dosage: 240 MG EVERY 4 WEEKS
     Route: 042
     Dates: start: 20200708, end: 20240607
  3. LEVOTHYROXINE SODIUM [Concomitant]
     Active Substance: LEVOTHYROXINE SODIUM
     Indication: Hypothyroidism
     Dosage: 25 MCG: 1 TABLET AT 7 O^CLOCK
     Route: 048
  4. LORATADINE [Concomitant]
     Active Substance: LORATADINE
     Dosage: 10 MG: 1 TABLET AT 6:00 P.M.
     Route: 048
  5. PREDNISONE [Concomitant]
     Active Substance: PREDNISONE
     Dosage: 5 MG: 1 TABLET AT 12:00 P.M. EVERY OTHER DAY
     Route: 048

REACTIONS (3)
  - Hypertensive heart disease [Unknown]
  - Acute myocardial infarction [Recovering/Resolving]
  - Left ventricular dysfunction [Unknown]

NARRATIVE: CASE EVENT DATE: 20240530
